FAERS Safety Report 13423802 (Version 2)
Quarter: 2017Q2

REPORT INFORMATION
  Report Type: Report from Study
  Country: AR (occurrence: AR)
  Receive Date: 20170410
  Receipt Date: 20170418
  Transmission Date: 20170830
  Serious: Yes (Death)
  Sender: FDA-Public Use
  Company Number: AR-SEATTLE GENETICS-2017SGN00911

PATIENT

DRUGS (1)
  1. BRENTUXIMAB VEDOTIN [Suspect]
     Active Substance: BRENTUXIMAB VEDOTIN
     Indication: HODGKIN^S DISEASE STAGE III
     Dosage: 70 MG, UNK
     Route: 042
     Dates: start: 20160916

REACTIONS (1)
  - Hodgkin^s disease stage III [Fatal]
